FAERS Safety Report 12013019 (Version 1)
Quarter: 2016Q1

REPORT INFORMATION
  Report Type: Spontaneous
  Country: CA (occurrence: US)
  Receive Date: 20160205
  Receipt Date: 20160205
  Transmission Date: 20160526
  Serious: Yes (Hospitalization, Other)
  Sender: FDA-Public Use
  Company Number: US-ASTRAZENECA-2016SE11787

PATIENT
  Sex: Female

DRUGS (1)
  1. SYNAGIS [Suspect]
     Active Substance: PALIVIZUMAB
     Indication: ANTIVIRAL PROPHYLAXIS
     Route: 030

REACTIONS (7)
  - Seizure [Unknown]
  - Pneumothorax [Unknown]
  - Respiratory syncytial virus infection [Unknown]
  - Venous thrombosis [Not Recovered/Not Resolved]
  - Disease complication [Unknown]
  - Abnormal behaviour [Unknown]
  - Infection [Unknown]

NARRATIVE: CASE EVENT DATE: 20131231
